FAERS Safety Report 13244115 (Version 1)
Quarter: 2017Q1

REPORT INFORMATION
  Report Type: Spontaneous
  Country: FR (occurrence: FR)
  Receive Date: 20170217
  Receipt Date: 20170217
  Transmission Date: 20170428
  Serious: Yes (Hospitalization)
  Sender: FDA-Public Use
  Company Number: FR-BIOVITRUM-2017FR0182

PATIENT
  Age: 81 Year
  Sex: Female

DRUGS (15)
  1. COLCHICINE OPOCALCIUM [Suspect]
     Active Substance: COLCHICINE
     Indication: GOUT
     Route: 048
     Dates: start: 20160903, end: 20161123
  2. PREVISCAN [Concomitant]
     Active Substance: FLUINDIONE
  3. MOVICOL [Concomitant]
     Active Substance: POLYETHYLENE GLYCOL 3350\POTASSIUM CHLORIDE\SODIUM BICARBONATE\SODIUM CHLORIDE
  4. LANSOPRAZOLE. [Concomitant]
     Active Substance: LANSOPRAZOLE
  5. FUROSEMIDE. [Concomitant]
     Active Substance: FUROSEMIDE
  6. ATENOLOL. [Concomitant]
     Active Substance: ATENOLOL
  7. ADENURIC [Concomitant]
     Active Substance: FEBUXOSTAT
  8. COLCHICINE OPOCALCIUM [Suspect]
     Active Substance: COLCHICINE
     Route: 048
     Dates: start: 20161124
  9. DIFFU-K [Concomitant]
     Active Substance: POTASSIUM CHLORIDE
  10. KINERET [Suspect]
     Active Substance: ANAKINRA
     Indication: RHEUMATOID ARTHRITIS
     Route: 058
     Dates: start: 20161125, end: 20161129
  11. FLECAINE [Concomitant]
     Active Substance: FLECAINIDE
  12. KINERET [Suspect]
     Active Substance: ANAKINRA
     Dates: end: 20161117
  13. GINKGO EXTRACT\HEPTAMINOL\TROXERUTIN [Concomitant]
     Active Substance: GINKGO\HEPTAMINOL\TROXERUTIN
  14. FOSAVANCE [Concomitant]
     Active Substance: ALENDRONATE SODIUM\CHOLECALCIFEROL
  15. ATACAND [Concomitant]
     Active Substance: CANDESARTAN CILEXETIL

REACTIONS (3)
  - Polyarthritis [Unknown]
  - Neutropenia [Recovered/Resolved]
  - Diarrhoea [Unknown]

NARRATIVE: CASE EVENT DATE: 20161127
